FAERS Safety Report 4622706-1 (Version None)
Quarter: 2005Q1

REPORT INFORMATION
  Report Type: 
  Country: None (occurrence: None)
  Receive Date: 20050329
  Receipt Date: 20050329
  Transmission Date: 20050727
  Serious: No
  Sender: FDA-Public Use
  Company Number: None

PATIENT
  Age: 78 Year
  Sex: Male
  Weight: 66.6788 kg

DRUGS (3)
  1. OXYCONTIN [Suspect]
  2. PERCOCET [Suspect]
  3. VALIUM [Suspect]

REACTIONS (8)
  - ASTHENIA [None]
  - BLOOD PRESSURE DECREASED [None]
  - BODY TEMPERATURE DECREASED [None]
  - COLD SWEAT [None]
  - MALAISE [None]
  - MEDICATION ERROR [None]
  - OVERDOSE [None]
  - VOMITING [None]
